FAERS Safety Report 10706073 (Version 1)
Quarter: 2015Q1

REPORT INFORMATION
  Report Type: Spontaneous
  Country: US (occurrence: US)
  Receive Date: 20150113
  Receipt Date: 20150113
  Transmission Date: 20150721
  Serious: No
  Sender: FDA-Public Use
  Company Number: US-BRISTOL-MYERS SQUIBB COMPANY-BMS-2015-000602

PATIENT
  Age: 60 Year
  Sex: Female

DRUGS (2)
  1. BYETTA [Suspect]
     Active Substance: EXENATIDE
     Indication: PRODUCT USED FOR UNKNOWN INDICATION
     Dosage: 10 ?G, BID
     Route: 058
     Dates: end: 20150106
  2. BYETTA [Suspect]
     Active Substance: EXENATIDE
     Dosage: 5 ?G, BID
     Route: 058
     Dates: start: 201411, end: 201412

REACTIONS (1)
  - Urticaria [Unknown]
